FAERS Safety Report 5590975-X (Version None)
Quarter: 2007Q4

REPORT INFORMATION
  Report Type: 
  Country: None (occurrence: None)
  Receive Date: 20071212
  Receipt Date: 20070801
  Transmission Date: 20080405
  Serious: Yes (Other)
  Sender: FDA-Public Use
  Company Number: USA-2007-0028645

PATIENT
  Age: 61 Year
  Sex: Female
  Weight: 91 kg

DRUGS (4)
  1. OXYCONTIN [Suspect]
     Indication: PROCEDURAL PAIN
     Dosage: 20 MG, BID, ORAL
     Route: 048
     Dates: start: 20070328, end: 20070329
  2. PERCOCET-5 [Suspect]
     Indication: PROCEDURAL PAIN
     Dosage: 2 TABLET, Q3H, ORAL
     Route: 048
     Dates: start: 20070328, end: 20070401
  3. ELAVIL [Concomitant]
  4. NEURONTIN [Concomitant]

REACTIONS (1)
  - RESPIRATORY DEPRESSION [None]
